FAERS Safety Report 15390762 (Version 7)
Quarter: 2020Q1

REPORT INFORMATION
  Report Type: Spontaneous
  Country: US (occurrence: US)
  Receive Date: 20180917
  Receipt Date: 20200127
  Transmission Date: 20200409
  Serious: Yes (Other)
  Sender: FDA-Public Use
  Company Number: US-SA-2018SA259450

PATIENT
  Age: 52 Year
  Sex: Female

DRUGS (3)
  1. AMPYRA [Suspect]
     Active Substance: DALFAMPRIDINE
     Dosage: UNK, UNK
     Route: 065
  2. AUBAGIO [Suspect]
     Active Substance: TERIFLUNOMIDE
     Indication: MULTIPLE SCLEROSIS
     Dosage: 14 MG, QD
     Route: 048
     Dates: start: 20180517
  3. DIOVAN [Concomitant]
     Active Substance: VALSARTAN
     Dosage: UNK, UNK
     Route: 065

REACTIONS (9)
  - Paraesthesia [Not Recovered/Not Resolved]
  - Paraesthesia [Unknown]
  - Balance disorder [Unknown]
  - Night sweats [Unknown]
  - Cough [Unknown]
  - Pyrexia [Unknown]
  - Neuropathy peripheral [Unknown]
  - Pollakiuria [Not Recovered/Not Resolved]
  - Product dose omission [Unknown]

NARRATIVE: CASE EVENT DATE: 20180815
